FAERS Safety Report 17996637 (Version 2)
Quarter: 2020Q3

REPORT INFORMATION
  Report Type: Report from Study
  Country: CN (occurrence: CN)
  Receive Date: 20200709
  Receipt Date: 20200721
  Transmission Date: 20201103
  Serious: Yes (Hospitalization, Other)
  Sender: FDA-Public Use
  Company Number: CN-BRISTOL-MYERS SQUIBB COMPANY-BMS-2020-046337

PATIENT
  Age: 48 Year
  Sex: Male
  Weight: 78.5 kg

DRUGS (6)
  1. NIVOLUMAB [Suspect]
     Active Substance: NIVOLUMAB
     Indication: NON-SMALL CELL LUNG CANCER
     Dosage: 360 MILLIGRAM
     Route: 042
     Dates: start: 20200320, end: 20200508
  2. CELEBREX [Concomitant]
     Active Substance: CELECOXIB
     Indication: PRODUCT USED FOR UNKNOWN INDICATION
     Dosage: 0.2 GRAM
     Route: 048
     Dates: start: 20200228
  3. BICYCLOL [Concomitant]
     Active Substance: BICYCLOL
     Indication: PREMEDICATION
     Dosage: 50 MILLIGRAM
     Route: 048
     Dates: start: 20200421
  4. CARBOPLATIN. [Suspect]
     Active Substance: CARBOPLATIN
     Indication: NON-SMALL CELL LUNG CANCER
     Dosage: 747 MILLIGRAM
     Route: 042
     Dates: start: 20200320, end: 20200508
  5. PEMETREXED DISODIUM [Suspect]
     Active Substance: PEMETREXED DISODIUM
     Indication: NON-SMALL CELL LUNG CANCER
     Dosage: 970 MILLIGRAM
     Route: 042
     Dates: start: 20200320, end: 20200508
  6. FOLIC ACID. [Concomitant]
     Active Substance: FOLIC ACID
     Indication: PREMEDICATION
     Dosage: 0.4 MILLIGRAM
     Route: 048
     Dates: start: 20200304

REACTIONS (1)
  - Pneumonia [Recovered/Resolved]

NARRATIVE: CASE EVENT DATE: 20200602
